FAERS Safety Report 6094170-X (Version None)
Quarter: 2009Q1

REPORT INFORMATION
  Report Type: 
  Country: None (occurrence: None)
  Receive Date: 20090226
  Receipt Date: 20090219
  Transmission Date: 20090719
  Serious: Yes (Hospitalization, Disabling, Other)
  Sender: FDA-Public Use
  Company Number: US-MERCK-0704USA05956

PATIENT
  Age: 55 Year
  Sex: Female
  Weight: 68 kg

DRUGS (2)
  1. FOSAMAX [Suspect]
     Indication: OSTEOPOROSIS
     Route: 048
     Dates: start: 20011001, end: 20060101
  2. MODURETIC 5-50 [Concomitant]
     Indication: HYPERTENSION
     Route: 065
     Dates: start: 19840101

REACTIONS (42)
  - ADHESION [None]
  - ADVERSE DRUG REACTION [None]
  - ANGINA PECTORIS [None]
  - ARTHROPATHY [None]
  - BLADDER DISORDER [None]
  - BLOOD CREATINE PHOSPHOKINASE INCREASED [None]
  - BLOOD DISORDER [None]
  - CLONUS [None]
  - DIARRHOEA [None]
  - DIZZINESS [None]
  - DRUG INTOLERANCE [None]
  - FALL [None]
  - GASTRIC DISORDER [None]
  - GASTRITIS [None]
  - GASTROOESOPHAGEAL REFLUX DISEASE [None]
  - GINGIVITIS [None]
  - HEADACHE [None]
  - HYPERSENSITIVITY [None]
  - HYPERTONIC BLADDER [None]
  - HYPOGLYCAEMIA [None]
  - INCREASED TENDENCY TO BRUISE [None]
  - IRRITABLE BOWEL SYNDROME [None]
  - MUSCULOSKELETAL PAIN [None]
  - MYOCLONUS [None]
  - NO THERAPEUTIC RESPONSE [None]
  - ORAL HERPES [None]
  - ORAL INFECTION [None]
  - OSTEOARTHRITIS [None]
  - OSTEOMYELITIS [None]
  - OSTEONECROSIS [None]
  - PAIN [None]
  - PERIODONTAL DISEASE [None]
  - RASH [None]
  - RESTLESS LEGS SYNDROME [None]
  - ROTATOR CUFF SYNDROME [None]
  - SEASONAL ALLERGY [None]
  - SINUS DISORDER [None]
  - STRESS URINARY INCONTINENCE [None]
  - TONSILLITIS [None]
  - TOOTH ABSCESS [None]
  - URTICARIA [None]
  - UTERINE DISORDER [None]
